FAERS Safety Report 8318145-2 (Version None)
Quarter: 2012Q2

REPORT INFORMATION
  Report Type: 
  Country: None (occurrence: None)
  Receive Date: 20120427
  Receipt Date: 20120423
  Transmission Date: 20120825
  Serious: Yes (Hospitalization, Other)
  Sender: FDA-Public Use
  Company Number: BR-PFIZER INC-2012101018

PATIENT
  Age: 87 Year
  Sex: Female
  Weight: 58 kg

DRUGS (6)
  1. PRISTIQ [Concomitant]
     Dosage: UNK
     Dates: start: 20080101
  2. ALPRAZOLAM [Suspect]
     Dosage: 0.5 MG, 1X/DAY
     Route: 048
     Dates: start: 20000215
  3. NAPRIX [Concomitant]
     Dosage: UNK
     Dates: start: 20080101
  4. ATENOLOL [Concomitant]
     Indication: BLOOD PRESSURE INCREASED
     Dosage: UNK
  5. LIPITOR [Concomitant]
     Indication: BLOOD CHOLESTEROL
     Dosage: UNK
     Dates: start: 20020326
  6. ALPRAZOLAM [Suspect]
     Dosage: 2 TABLETS OF 0.25 MG, DAILY
     Route: 048
     Dates: start: 20120423

REACTIONS (2)
  - SYNCOPE [None]
  - ARRHYTHMIA [None]
